FAERS Safety Report 24247003 (Version 1)
Quarter: 2024Q3

REPORT INFORMATION
  Report Type: Other
  Country: ID (occurrence: ID)
  Receive Date: 20240826
  Receipt Date: 20240826
  Transmission Date: 20241017
  Serious: Yes (Death, Hospitalization)
  Sender: BIONPHARMA
  Company Number: ID-Bion-013731

PATIENT
  Age: 4 Year
  Sex: Female

DRUGS (3)
  1. DEXAMETHASONE [Suspect]
     Active Substance: DEXAMETHASONE
     Indication: Mastoiditis
     Route: 042
  2. MANNITOL [Concomitant]
     Active Substance: MANNITOL
     Indication: Mastoiditis
     Route: 042
  3. MEROPENEM [Concomitant]
     Active Substance: MEROPENEM
     Indication: Mastoiditis
     Route: 042

REACTIONS (1)
  - Drug ineffective for unapproved indication [Fatal]
